FAERS Safety Report 4745477-7 (Version None)
Quarter: 2005Q3

REPORT INFORMATION
  Report Type: 
  Country: None (occurrence: None)
  Receive Date: 20050815
  Receipt Date: 20050808
  Transmission Date: 20060218
  Serious: Yes (Hospitalization)
  Sender: FDA-Public Use
  Company Number: JP-MERCK-0508USA01830

PATIENT
  Age: 84 Year
  Sex: Female

DRUGS (2)
  1. PEPCID [Suspect]
     Indication: GASTRIC ULCER
     Route: 048
     Dates: start: 20040930, end: 20050520
  2. LIPITOR [Suspect]
     Route: 048
     Dates: start: 20041130, end: 20050520

REACTIONS (2)
  - ANAEMIA [None]
  - NEPHROGENIC ANAEMIA [None]
